FAERS Safety Report 5806715-2 (Version None)
Quarter: 2008Q3

REPORT INFORMATION
  Report Type: 
  Country: None (occurrence: None)
  Receive Date: 20080711
  Receipt Date: 20080708
  Transmission Date: 20090109
  Serious: Yes (Other)
  Sender: FDA-Public Use
  Company Number: GB-RANBAXY-2008RR-16265

PATIENT

DRUGS (3)
  1. LORATADINE 10MG TABLETS [Suspect]
     Indication: SEASONAL ALLERGY
     Dosage: 10 MG, UNK
  2. LANTUS [Concomitant]
  3. NOVORAPID [Concomitant]

REACTIONS (2)
  - AGGRESSION [None]
  - HYPOGLYCAEMIA [None]
